FAERS Safety Report 9845115 (Version 1)
Quarter: 2014Q1

REPORT INFORMATION
  Report Type: Spontaneous
  Country: GB (occurrence: None)
  Receive Date: 20140122
  Receipt Date: 20140122
  Transmission Date: 20141002
  Serious: Yes (Life-Threatening, Other)
  Sender: FDA-Public Use
  Company Number: SYM-2014-14820

PATIENT
  Age: 72 Year
  Sex: Male

DRUGS (7)
  1. METRONIDAZOLE [Suspect]
     Indication: CELLULITIS
     Route: 048
     Dates: start: 20131219, end: 20131223
  2. TEICOPLANIN SODIUM (TEICOPLANIN) (TEICOPLANIN) [Suspect]
     Indication: CELLULITIS
     Route: 042
     Dates: start: 20131219, end: 20131223
  3. HUMULIN (HUMAN MIXTARD) (INSULIN HUMAN, INSULIN HUMAN INJECTION, ISOPHANE) [Concomitant]
  4. METFORMIN (METFORMIN) (METFORMIN) [Concomitant]
  5. SIMVASTATIN (SIMVASTATIN) (SIMVASTATIN) [Concomitant]
  6. OMEPRAZOLE (OMEPRAZOLE) (OMEPRAZOLE) [Concomitant]
  7. CITALOPRAM (CITLOPRAM) (CITLOPRAM) [Concomitant]

REACTIONS (1)
  - Liver injury [None]
